FAERS Safety Report 4354556-8 (Version None)
Quarter: 2004Q2

REPORT INFORMATION
  Report Type: 
  Country: None (occurrence: None)
  Receive Date: 20040503
  Receipt Date: 20040423
  Transmission Date: 20050107
  Serious: Yes (Hospitalization)
  Sender: FDA-Public Use
  Company Number: 2004UW07774

PATIENT
  Age: 45 Year
  Sex: Male
  Weight: 76.2043 kg

DRUGS (3)
  1. CRESTOR [Suspect]
     Indication: BLOOD CHOLESTEROL INCREASED
     Dosage: 10 MG DAILY; PO
     Route: 048
     Dates: start: 20040202, end: 20040325
  2. TOPROL-XL [Concomitant]
  3. LISINOPRIL [Concomitant]

REACTIONS (3)
  - ACUTE MYELOID LEUKAEMIA [None]
  - CORONARY ARTERY SURGERY [None]
  - RASH [None]
